FAERS Safety Report 9991062 (Version 1)
Quarter: 2014Q1

REPORT INFORMATION
  Report Type: Report from Study
  Country: US (occurrence: US)
  Receive Date: 20140310
  Receipt Date: 20140310
  Transmission Date: 20141002
  Serious: No
  Sender: FDA-Public Use
  Company Number: US-ABBVIE-13P-163-1133409-00

PATIENT
  Age: 62 Year
  Sex: Female

DRUGS (11)
  1. HUMIRA [Suspect]
     Indication: RHEUMATOID ARTHRITIS
     Dates: start: 20130408
  2. AMLODIPINE [Concomitant]
     Indication: HYPERTENSION
  3. SIMVASTATIN [Concomitant]
     Indication: HYPERCHOLESTEROLAEMIA
  4. BABY ASPIRIN [Concomitant]
     Indication: CARDIAC DISORDER
  5. METOPROLOL [Concomitant]
     Indication: HYPERTENSION
  6. METHOTREXATE [Concomitant]
     Indication: RHEUMATOID ARTHRITIS
     Dosage: EVERY FRIDAY
  7. PREDNISONE [Concomitant]
     Indication: RHEUMATOID ARTHRITIS
  8. FOLIC ACID [Concomitant]
     Indication: PRODUCT USED FOR UNKNOWN INDICATION
  9. TRAMADOL [Concomitant]
     Indication: ARTHRALGIA
  10. NABUMETONE [Concomitant]
     Indication: RHEUMATOID ARTHRITIS
  11. LOSARTAN/HCTZ [Concomitant]
     Indication: HYPERTENSION
     Dosage: 100/125MG EVERY DAY

REACTIONS (1)
  - Skin wound [Not Recovered/Not Resolved]
